FAERS Safety Report 24172194 (Version 1)
Quarter: 2024Q3

REPORT INFORMATION
  Report Type: Spontaneous
  Country: BE (occurrence: BE)
  Receive Date: 20240805
  Receipt Date: 20240805
  Transmission Date: 20241016
  Serious: Yes (Other)
  Sender: TAKEDA
  Company Number: BE-TAKEDA-2023TUS085003

PATIENT
  Age: 73 Year
  Sex: Female
  Weight: 56 kg

DRUGS (1)
  1. ENTYVIO [Suspect]
     Active Substance: VEDOLIZUMAB
     Indication: Immune-mediated enterocolitis
     Dosage: UNK
     Route: 042
     Dates: start: 20230825

REACTIONS (2)
  - Gastrointestinal erosion [Unknown]
  - Off label use [Unknown]

NARRATIVE: CASE EVENT DATE: 20230825
